FAERS Safety Report 7782525-4 (Version None)
Quarter: 2011Q3

REPORT INFORMATION
  Report Type: 
  Country: None (occurrence: None)
  Receive Date: 20110928
  Receipt Date: 20110915
  Transmission Date: 20111222
  Serious: Yes (Death, Hospitalization, Other)
  Sender: FDA-Public Use
  Company Number: CA-ELI_LILLY_AND_COMPANY-CA201109003970

PATIENT
  Sex: Female

DRUGS (8)
  1. LORAZEPAM [Concomitant]
  2. VALPROATE SODIUM [Concomitant]
  3. ZYPREXA ZYDIS [Suspect]
     Indication: SCHIZOPHRENIA
     Dosage: 20 MG, UNK
  4. ZYPREXA ZYDIS [Suspect]
     Dosage: 10 MG, UNK
  5. ZYPREXA [Suspect]
     Indication: SCHIZOPHRENIA
     Dosage: 7.5 MG, UNK
  6. RISPERDAL [Concomitant]
  7. CLONAZEPAM [Concomitant]
  8. ZYPREXA ZYDIS [Suspect]
     Dosage: 15 MG, UNK

REACTIONS (6)
  - CONVULSION [None]
  - PANCREATIC CARCINOMA [None]
  - LIVER FUNCTION TEST ABNORMAL [None]
  - DEATH [None]
  - RECTAL HAEMORRHAGE [None]
  - PANCREATITIS [None]
